FAERS Safety Report 15538744 (Version 5)
Quarter: 2018Q4

REPORT INFORMATION
  Report Type: Spontaneous
  Country: US (occurrence: US)
  Receive Date: 20181022
  Receipt Date: 20181205
  Transmission Date: 20190205
  Serious: No
  Sender: FDA-Public Use
  Company Number: US-SA-2018SA290765

PATIENT
  Age: 86 Year
  Sex: Male

DRUGS (2)
  1. VICTOZA [Concomitant]
     Active Substance: LIRAGLUTIDE
     Dosage: UNKNOWN
     Route: 065
  2. LANTUS [Suspect]
     Active Substance: INSULIN GLARGINE
     Indication: DIABETES MELLITUS
     Dosage: 32 U, UNK
     Route: 065

REACTIONS (4)
  - Blood glucose decreased [Unknown]
  - Device issue [Unknown]
  - Needle issue [Unknown]
  - Wrong schedule [Unknown]
